FAERS Safety Report 17185006 (Version 1)
Quarter: 2019Q4

REPORT INFORMATION
  Report Type: Spontaneous
  Country: US (occurrence: US)
  Receive Date: 20191127
  Receipt Date: 20191127
  Transmission Date: 20200122
  Serious: Yes (Hospitalization)
  Sender: FDA-Public Use
  Company Number: None

PATIENT
  Age: 65 Year
  Sex: Male
  Weight: 88.5 kg

DRUGS (1)
  1. APIXABAN (DOSE DOUBLE-BLINDED) [Suspect]
     Active Substance: APIXABAN
     Indication: DEEP VEIN THROMBOSIS
     Route: 048
     Dates: start: 20190522

REACTIONS (10)
  - Hepatic mass [None]
  - Liver function test increased [None]
  - Bile duct obstruction [None]
  - Chromaturia [None]
  - Night sweats [None]
  - Faeces soft [None]
  - Device occlusion [None]
  - Abdominal pain upper [None]
  - Hepatobiliary disease [None]
  - Faeces discoloured [None]

NARRATIVE: CASE EVENT DATE: 20191126
